FAERS Safety Report 8053425-X (Version None)
Quarter: 2012Q1

REPORT INFORMATION
  Report Type: 
  Country: None (occurrence: None)
  Receive Date: 20120118
  Receipt Date: 20120113
  Transmission Date: 20120608
  Serious: Yes (Other)
  Sender: FDA-Public Use
  Company Number: US-GLAXOSMITHKLINE-A0961415A

PATIENT
  Age: 50 Year
  Sex: Male

DRUGS (4)
  1. OMEPRAZOLE [Concomitant]
  2. FLONASE [Suspect]
     Indication: RHINITIS ALLERGIC
     Dosage: 2SPR TWICE PER DAY
     Route: 045
     Dates: end: 20101101
  3. ZYRTEC [Concomitant]
  4. ASMANEX TWISTHALER [Concomitant]

REACTIONS (2)
  - NASAL SEPTUM ULCERATION [None]
  - NASAL SEPTUM PERFORATION [None]
